FAERS Safety Report 6755398-6 (Version None)
Quarter: 2010Q2

REPORT INFORMATION
  Report Type: 
  Country: None (occurrence: None)
  Receive Date: 20100604
  Receipt Date: 20100524
  Transmission Date: 20101027
  Serious: Yes (Other)
  Sender: FDA-Public Use
  Company Number: US-PFIZER INC-2010065434

PATIENT
  Sex: Female
  Weight: 50.8 kg

DRUGS (12)
  1. LIPITOR [Suspect]
     Indication: BLOOD CHOLESTEROL INCREASED
     Dosage: 40 MG, 1X/DAY
     Dates: start: 20091101, end: 20100307
  2. LIPITOR [Suspect]
     Dosage: UNK
     Dates: start: 20100321, end: 20100513
  3. TOPROL-XL [Suspect]
     Indication: BLOOD PRESSURE INCREASED
     Dosage: 100 MG, 2X/DAY
  4. TOPROL-XL [Suspect]
     Dosage: 100 MG, 1X/DAY
  5. TOPROL-XL [Suspect]
     Dosage: 50 MG, 1X/DAY
  6. TOPROL-XL [Suspect]
     Dosage: 25 MG, 1X/DAY
  7. NEURONTIN [Concomitant]
     Dosage: UNK
  8. CELEBREX [Concomitant]
     Indication: ARTHRITIS
     Dosage: UNK
  9. ACETYLSALICYLIC ACID [Concomitant]
     Dosage: UNK
  10. VALSARTAN [Concomitant]
     Indication: HYPERTENSION
     Dosage: 160 MG, UNK
  11. SYNTHROID [Concomitant]
     Indication: HYPOTHYROIDISM
     Dosage: UNK
  12. KLONOPIN [Concomitant]
     Dosage: UNK

REACTIONS (9)
  - ARTHRALGIA [None]
  - BACK PAIN [None]
  - BLOOD PRESSURE DECREASED [None]
  - HEPATIC ENZYME INCREASED [None]
  - INFLUENZA [None]
  - MUSCULOSKELETAL CHEST PAIN [None]
  - MYALGIA [None]
  - PAIN IN EXTREMITY [None]
  - THYROID FUNCTION TEST ABNORMAL [None]
